FAERS Safety Report 8391112-9 (Version None)
Quarter: 2012Q2

REPORT INFORMATION
  Report Type: 
  Country: None (occurrence: None)
  Receive Date: 20120529
  Receipt Date: 20120528
  Transmission Date: 20120825
  Serious: Yes (Hospitalization, Other)
  Sender: FDA-Public Use
  Company Number: PHHO2005CA07391

PATIENT
  Sex: Female

DRUGS (17)
  1. SANDOSTATIN LAR [Suspect]
     Dosage: 30 MG, QMO
     Route: 030
  2. ALTACE [Concomitant]
     Dosage: 5 MG, QD
     Route: 048
  3. PREMARIN [Concomitant]
     Dosage: 0.625 MG, QD
     Route: 048
  4. SYNTHROID [Concomitant]
     Dosage: 0.115 MG, QD
     Route: 048
  5. TYLENOL [Concomitant]
     Indication: OSTEITIS DEFORMANS
     Route: 048
  6. TYLENOL [Concomitant]
     Indication: OSTEOPOROSIS
  7. SANDOSTATIN LAR [Suspect]
     Dosage: 30 MG, EVERY 4 WEEKS
     Route: 030
  8. APO-FUROSEMIDE [Concomitant]
     Dosage: 20 MG, QD
     Route: 048
  9. SIMVASTATIN [Concomitant]
     Indication: BLOOD CHOLESTEROL
     Dosage: 20 MG, QD
     Route: 048
  10. XANAX [Concomitant]
     Dosage: 0.5 MG, QD
     Route: 048
  11. PENICILLIN [Concomitant]
  12. ALTACE [Concomitant]
     Dosage: UNK UKN, UNK
     Dates: start: 20050201
  13. ROBAXACET [Concomitant]
  14. SANDOSTATIN LAR [Suspect]
     Indication: ACROMEGALY
     Dosage: 20 MG, QMO
     Route: 030
     Dates: start: 20021120
  15. TRAZODONE HCL [Concomitant]
     Indication: DEPRESSION
     Dosage: 50 MG, TID
     Route: 048
  16. METFORMIN HCL [Concomitant]
     Indication: DIABETES MELLITUS
     Dosage: 500 MG, TID
     Route: 048
  17. APO-ATENOL [Concomitant]
     Indication: BLOOD PRESSURE
     Dosage: 100 MG, QD
     Route: 048

REACTIONS (14)
  - PNEUMONIA [None]
  - HYPOTENSION [None]
  - BLOOD PRESSURE SYSTOLIC INCREASED [None]
  - HEADACHE [None]
  - MUSCULOSKELETAL PAIN [None]
  - INJECTION SITE SWELLING [None]
  - PAIN [None]
  - PERICARDIAL EFFUSION [None]
  - CARDIOMEGALY [None]
  - BREAST MASS [None]
  - HYPERGLYCAEMIA [None]
  - LUNG DISORDER [None]
  - INJECTION SITE PAIN [None]
  - PERIARTHRITIS [None]
